FAERS Safety Report 6079352-5 (Version None)
Quarter: 2009Q1

REPORT INFORMATION
  Report Type: 
  Country: None (occurrence: None)
  Receive Date: 20090216
  Receipt Date: 20090212
  Transmission Date: 20090719
  Serious: Yes (Life-Threatening, Other)
  Sender: FDA-Public Use
  Company Number: GB-ASTRAZENECA-2009GB00471

PATIENT
  Age: 37 Year
  Sex: Female

DRUGS (11)
  1. SYMBICORT [Suspect]
     Indication: ASTHMA
     Dosage: TWO INHALATIONS, TWICE DAILY
     Route: 055
     Dates: start: 20090122, end: 20090122
  2. CARBOCYSTEINE [Concomitant]
     Route: 065
     Dates: start: 20080114
  3. CODEINE PHOSPHATE [Concomitant]
     Route: 065
  4. ERYTHROMYCIN [Concomitant]
     Route: 065
  5. IPRATROPIUM BROMIDE [Concomitant]
     Indication: ASTHMA
     Route: 055
     Dates: start: 20090112
  6. MONTELUKAST SODIUM [Concomitant]
     Indication: ASTHMA
     Route: 048
     Dates: start: 20090114
  7. PARACETAMOL [Concomitant]
     Route: 065
  8. PREDNISOLONE [Concomitant]
     Route: 065
  9. SALBUTAMOL [Concomitant]
     Indication: ASTHMA
     Route: 055
  10. SERETIDE [Concomitant]
     Indication: ASTHMA
     Route: 055
  11. SIMPLE LINCTUS [Concomitant]
     Route: 065
     Dates: start: 20090114

REACTIONS (2)
  - DYSPHAGIA [None]
  - PHARYNGEAL OEDEMA [None]
